FAERS Safety Report 4653210-2 (Version None)
Quarter: 2005Q2

REPORT INFORMATION
  Report Type: 
  Country: None (occurrence: None)
  Receive Date: 20050505
  Receipt Date: 20050427
  Transmission Date: 20051028
  Serious: Yes (Hospitalization)
  Sender: FDA-Public Use
  Company Number: PHEH2005US04836

PATIENT
  Age: 58 Year
  Sex: Male

DRUGS (5)
  1. ZELNORM [Suspect]
     Indication: IRRITABLE BOWEL SYNDROME
     Dosage: 6 MG, BID
     Route: 048
     Dates: start: 20050405
  2. DICYCLOMINE [Concomitant]
  3. PREVACID [Concomitant]
  4. OXYCODONE HCL [Concomitant]
  5. NORVASC [Concomitant]

REACTIONS (7)
  - ABDOMINAL PAIN [None]
  - ALANINE AMINOTRANSFERASE INCREASED [None]
  - ASPARTATE AMINOTRANSFERASE INCREASED [None]
  - BLOOD ALKALINE PHOSPHATASE INCREASED [None]
  - HEPATIC ENZYME INCREASED [None]
  - NAUSEA [None]
  - VOMITING [None]
